FAERS Safety Report 13422609 (Version 1)
Quarter: 2017Q2

REPORT INFORMATION
  Report Type: Spontaneous
  Country: US (occurrence: US)
  Receive Date: 20170410
  Receipt Date: 20170410
  Transmission Date: 20170830
  Serious: No
  Sender: FDA-Public Use
  Company Number: US-BIOGEN-2017BI00383260

PATIENT
  Sex: Female

DRUGS (1)
  1. AVONEX [Suspect]
     Active Substance: INTERFERON BETA-1A
     Indication: MULTIPLE SCLEROSIS
     Route: 065
     Dates: start: 20100201

REACTIONS (8)
  - Oropharyngeal pain [Unknown]
  - Confusional state [Unknown]
  - Cough [Unknown]
  - Fear [Unknown]
  - Hypertension [Unknown]
  - Peripheral swelling [Unknown]
  - Malaise [Unknown]
  - Rhinorrhoea [Unknown]
